FAERS Safety Report 20785906 (Version 1)
Quarter: 2022Q2

REPORT INFORMATION
  Report Type: Spontaneous
  Country: US (occurrence: None)
  Receive Date: 20220504
  Receipt Date: 20220504
  Transmission Date: 20220721
  Serious: No
  Sender: FDA-Public Use
  Company Number: US-ROCHE-2809225

PATIENT
  Sex: Male
  Weight: 59.928 kg

DRUGS (4)
  1. OCREVUS [Suspect]
     Active Substance: OCRELIZUMAB
     Indication: Secondary progressive multiple sclerosis
     Route: 042
     Dates: start: 202012
  2. COPAXONE [Concomitant]
     Active Substance: GLATIRAMER ACETATE
  3. AVONEX [Concomitant]
     Active Substance: INTERFERON BETA-1A
  4. GILENYA [Concomitant]
     Active Substance: FINGOLIMOD HYDROCHLORIDE

REACTIONS (2)
  - Mobility decreased [Not Recovered/Not Resolved]
  - Drug ineffective [Unknown]
